FAERS Safety Report 7651354-4 (Version None)
Quarter: 2011Q3

REPORT INFORMATION
  Report Type: 
  Country: None (occurrence: None)
  Receive Date: 20110802
  Receipt Date: 20110720
  Transmission Date: 20111222
  Serious: Yes (Other)
  Sender: FDA-Public Use
  Company Number: PHHO2011IE04678

PATIENT
  Sex: Male
  Weight: 92.2 kg

DRUGS (14)
  1. ESIDRIX [Suspect]
     Indication: CARDIOVASCULAR DISORDER
     Dosage: ACTIVE RUN-IN PHASE
  2. ATORVASTATIN [Concomitant]
  3. PLACEBO [Suspect]
     Indication: CARDIOVASCULAR DISORDER
     Dosage: ACTIVE RUN-IN PHASE
  4. ESIDRIX [Suspect]
     Indication: CARDIOVASCULAR DISORDER
     Dosage: 25 MG, QD
     Route: 048
     Dates: end: 20110309
  5. INSULIN [Concomitant]
  6. ALISKIREN [Suspect]
     Indication: CARDIOVASCULAR DISORDER
     Dosage: 300 MG, QD
     Route: 048
     Dates: end: 20110309
  7. BLINDED ALISKIREN [Suspect]
     Indication: CARDIOVASCULAR DISORDER
     Dosage: ACTIVE RUN-IN PHASE
  8. AMLODIPINE [Suspect]
     Indication: CARDIOVASCULAR DISORDER
     Dosage: ACTIVE RUN-IN PHASE
  9. ASPIRIN [Concomitant]
  10. PERINDOPRIL [Concomitant]
  11. CLOPIDOGREL [Concomitant]
  12. BLINDED NO TREATMENT RECEIVED [Suspect]
     Indication: CARDIOVASCULAR DISORDER
     Dosage: ACTIVE RUN-IN PHASE
  13. ATENOLOL [Concomitant]
  14. TICLOPIDINE HCL [Concomitant]

REACTIONS (4)
  - DRUG INTOLERANCE [None]
  - ABDOMINAL PAIN [None]
  - DIZZINESS [None]
  - DIARRHOEA [None]
